FAERS Safety Report 21950767 (Version 1)
Quarter: 2023Q1

REPORT INFORMATION
  Report Type: Spontaneous
  Country: RU (occurrence: RU)
  Receive Date: 20230203
  Receipt Date: 20230203
  Transmission Date: 20230418
  Serious: Yes (Other)
  Sender: FDA-Public Use
  Company Number: RU-Merck Healthcare KGaA-9380102

PATIENT
  Age: 51 Year
  Sex: Male

DRUGS (5)
  1. ERBITUX [Suspect]
     Active Substance: CETUXIMAB
     Indication: Laryngeal squamous cell carcinoma
     Dosage: TPEX REGIMEN, 4 CYCLE
     Route: 065
     Dates: start: 20220321, end: 20220603
  2. CISPLATIN [Suspect]
     Active Substance: CISPLATIN
     Indication: Laryngeal squamous cell carcinoma
     Dosage: UNK UNK, UNKNOWN
     Route: 065
     Dates: start: 20200914, end: 20201127
  3. CISPLATIN [Suspect]
     Active Substance: CISPLATIN
     Dosage: TPEX REGIMEN, 4 CYCLE
     Route: 065
     Dates: start: 20220321, end: 20220603
  4. DOCETAXEL [Suspect]
     Active Substance: DOCETAXEL
     Indication: Laryngeal squamous cell carcinoma
     Dosage: UNK UNK, UNKNOWN
     Route: 065
     Dates: start: 20200914, end: 20201127
  5. DOCETAXEL [Suspect]
     Active Substance: DOCETAXEL
     Dosage: TPEX REGIMEN, 4 CYCLE
     Route: 065
     Dates: start: 20220321, end: 20220603

REACTIONS (1)
  - Haematotoxicity [Unknown]
